FAERS Safety Report 8555753-8 (Version None)
Quarter: 2012Q3

REPORT INFORMATION
  Report Type: 
  Country: None (occurrence: None)
  Receive Date: 20120801
  Receipt Date: 20120724
  Transmission Date: 20120928
  Serious: No
  Sender: FDA-Public Use
  Company Number: US-009507513-1207USA010007

PATIENT

DRUGS (7)
  1. LORATINE [Concomitant]
  2. LIPITOR [Concomitant]
  3. GLIPIZIDE [Concomitant]
  4. GEODON [Concomitant]
  5. JANUMET [Suspect]
     Indication: DIABETES MELLITUS
     Dosage: 50MG/1000MG,TWICE DAILY
     Route: 048
     Dates: end: 20120719
  6. PAXIL [Concomitant]
  7. MELOXICAM [Concomitant]

REACTIONS (1)
  - CARBOHYDRATE ANTIGEN 19-9 INCREASED [None]
